FAERS Safety Report 6376339-X (Version None)
Quarter: 2009Q3

REPORT INFORMATION
  Report Type: 
  Country: None (occurrence: None)
  Receive Date: 20090922
  Receipt Date: 20090922
  Transmission Date: 20100115
  Serious: Yes (Death, Hospitalization, Other)
  Sender: FDA-Public Use
  Company Number: None

PATIENT
  Sex: Female
  Weight: 9.6616 kg

DRUGS (1)
  1. DEPAKOTE [Suspect]
     Indication: PETIT MAL EPILEPSY
     Dosage: 125 MG BID PO
     Route: 048
     Dates: start: 20090508, end: 20090818

REACTIONS (12)
  - CARDIAC FAILURE [None]
  - CONDITION AGGRAVATED [None]
  - DRUG LEVEL DECREASED [None]
  - HEPATIC FAILURE [None]
  - INTERNATIONAL NORMALISED RATIO INCREASED [None]
  - LETHARGY [None]
  - PANCREATITIS NECROTISING [None]
  - PLATELET COUNT DECREASED [None]
  - RENAL FAILURE [None]
  - RESPIRATORY FAILURE [None]
  - VENTRICULAR FIBRILLATION [None]
  - VENTRICULAR TACHYCARDIA [None]
